FAERS Safety Report 17660157 (Version 1)
Quarter: 2020Q2

REPORT INFORMATION
  Report Type: Spontaneous
  Country: FR (occurrence: FR)
  Receive Date: 20200413
  Receipt Date: 20200413
  Transmission Date: 20200713
  Serious: Yes (Other)
  Sender: FDA-Public Use
  Company Number: FR-PFIZER INC-2020144881

PATIENT
  Age: 78 Year
  Sex: Male
  Weight: 72 kg

DRUGS (17)
  1. FLUCONAZOLE ARROW [Suspect]
     Active Substance: FLUCONAZOLE
     Indication: UROGENITAL INFECTION FUNGAL
     Dosage: 200 MG, DAILY
     Route: 048
     Dates: start: 20200214, end: 20200223
  2. LANSOPRAZOLE. [Concomitant]
     Active Substance: LANSOPRAZOLE
     Dosage: UNK
  3. CORTANCYL [Concomitant]
     Active Substance: PREDNISONE
     Dosage: UNK
  4. ENTRESTO [Concomitant]
     Active Substance: SACUBITRIL\VALSARTAN
     Dosage: UNK
  5. ROVALCYTE [Concomitant]
     Active Substance: VALGANCICLOVIR HYDROCHLORIDE
     Dosage: UNK
  6. NEURONTIN [Suspect]
     Active Substance: GABAPENTIN
     Indication: NEURALGIA
     Dosage: 100 MG, DAILY
     Route: 048
     Dates: start: 20200210, end: 20200223
  7. BACTRIM [Concomitant]
     Active Substance: SULFAMETHOXAZOLE\TRIMETHOPRIM
     Dosage: UNK
  8. PARACETAMOL [Concomitant]
     Active Substance: ACETAMINOPHEN
     Dosage: UNK
  9. MELATONINE [Concomitant]
     Active Substance: MELATONIN
     Dosage: UNK
  10. ZYVOXID [Suspect]
     Active Substance: LINEZOLID
     Indication: URINARY TRACT INFECTION
     Dosage: 1200 MG, 1X/DAY
     Route: 048
     Dates: start: 20200210, end: 20200220
  11. LASILIX [FUROSEMIDE] [Concomitant]
     Active Substance: FUROSEMIDE
     Dosage: UNK
  12. BICARBONATE SODIUM [Concomitant]
     Active Substance: SODIUM BICARBONATE
     Dosage: UNK
  13. NOVONORM [Concomitant]
     Active Substance: REPAGLINIDE
     Dosage: UNK
  14. ELIQUIS [Concomitant]
     Active Substance: APIXABAN
     Dosage: UNK
  15. BISOCE [Concomitant]
     Active Substance: BISOPROLOL
     Dosage: UNK
  16. MECIR [Concomitant]
     Active Substance: TAMSULOSIN HYDROCHLORIDE
     Dosage: UNK
  17. ADVAGRAF [Concomitant]
     Active Substance: TACROLIMUS
     Dosage: UNK

REACTIONS (2)
  - Condition aggravated [Recovering/Resolving]
  - Thrombocytopenia [Recovering/Resolving]

NARRATIVE: CASE EVENT DATE: 20200223
